FAERS Safety Report 25477281 (Version 2)
Quarter: 2025Q3

REPORT INFORMATION
  Report Type: Spontaneous
  Country: GB (occurrence: GB)
  Receive Date: 20250625
  Receipt Date: 20250814
  Transmission Date: 20251020
  Serious: Yes (Other)
  Sender: RANBAXY
  Company Number: GB-SUN PHARMACEUTICAL INDUSTRIES LTD-2025R1-513191

PATIENT
  Age: 41 Year
  Sex: Female

DRUGS (1)
  1. SERTRALINE [Suspect]
     Active Substance: SERTRALINE HYDROCHLORIDE
     Indication: Depressive symptom
     Route: 065

REACTIONS (3)
  - Condition aggravated [Unknown]
  - Cognitive disorder [Recovering/Resolving]
  - Premenstrual dysphoric disorder [Recovering/Resolving]
